FAERS Safety Report 4619165-1 (Version None)
Quarter: 2005Q1

REPORT INFORMATION
  Report Type: 
  Country: None (occurrence: None)
  Receive Date: 20050325
  Receipt Date: 20050322
  Transmission Date: 20050727
  Serious: Yes (Death, Life-Threatening, Hospitalization, Disabling)
  Sender: FDA-Public Use
  Company Number: US-SANOFI-SYNTHELABO-F01200500446

PATIENT
  Sex: Female

DRUGS (5)
  1. OXALIPLATIN [Suspect]
     Indication: COLORECTAL CANCER
     Route: 042
     Dates: start: 20030430, end: 20030430
  2. FLUOROURACIL [Suspect]
     Dosage: (400 MG/M2 AS  BOLUS FOLLOWED BY 600 MG/M2 IV OVER 22 HOURS, ON D1-D2 Q2W)
     Route: 042
  3. LEUCOVORIN [Suspect]
     Dosage: (200 MG/M2 IV OVER 2 HOURS ON D1-D2, Q2W)
     Route: 042
  4. BEVACIZUMAB [Suspect]
     Route: 042
     Dates: start: 20030416, end: 20030416
  5. PREDNISONE [Concomitant]
     Dosage: UNK
     Route: 065

REACTIONS (16)
  - ACIDOSIS [None]
  - ACUTE RESPIRATORY DISTRESS SYNDROME [None]
  - ASTHENIA [None]
  - BLOOD CREATININE [None]
  - CONFUSIONAL STATE [None]
  - DEPRESSED LEVEL OF CONSCIOUSNESS [None]
  - HYPOCALCAEMIA [None]
  - HYPOTENSION [None]
  - HYPOXIA [None]
  - INFECTION [None]
  - LETHARGY [None]
  - LEUKOPENIA [None]
  - LOSS OF CONSCIOUSNESS [None]
  - NEUTROPENIC INFECTION [None]
  - NEUTROPHIL COUNT [None]
  - TACHYPNOEA [None]
